FAERS Safety Report 17895872 (Version 1)
Quarter: 2020Q2

REPORT INFORMATION
  Report Type: Spontaneous
  Country: US (occurrence: US)
  Receive Date: 20200615
  Receipt Date: 20200615
  Transmission Date: 20200714
  Serious: No
  Sender: FDA-Public Use
  Company Number: None

PATIENT
  Age: 27 Year
  Sex: Female
  Weight: 67.13 kg

DRUGS (1)
  1. PARAGARD T 380A [Suspect]
     Active Substance: COPPER

REACTIONS (11)
  - Nausea [None]
  - Feeling abnormal [None]
  - Thyroid disorder [None]
  - Emotional disorder [None]
  - Vomiting [None]
  - Diarrhoea [None]
  - Heart rate increased [None]
  - Anger [None]
  - Abdominal pain [None]
  - Hypoaesthesia [None]
  - Malaise [None]

NARRATIVE: CASE EVENT DATE: 20200420
